FAERS Safety Report 11324274 (Version 2)
Quarter: 2015Q3

REPORT INFORMATION
  Report Type: Spontaneous
  Country: US (occurrence: US)
  Receive Date: 20150730
  Receipt Date: 20150731
  Transmission Date: 20151125
  Serious: No
  Sender: FDA-Public Use
  Company Number: US-BAYER-2015-383073

PATIENT
  Age: 2 Year
  Sex: Female
  Weight: 11 kg

DRUGS (1)
  1. MIRALAX [Suspect]
     Active Substance: POLYETHYLENE GLYCOL 3350
     Indication: CONSTIPATION PROPHYLAXIS
     Dosage: 1 DOSE, QD
     Route: 048
     Dates: start: 201504, end: 20150707

REACTIONS (3)
  - Diarrhoea [Recovered/Resolved]
  - Weight decreased [None]
  - Product use issue [Unknown]

NARRATIVE: CASE EVENT DATE: 201504
